FAERS Safety Report 15613548 (Version 1)
Quarter: 2018Q4

REPORT INFORMATION
  Report Type: Other
  Country: CN (occurrence: CN)
  Receive Date: 20181113
  Receipt Date: 20181113
  Transmission Date: 20190205
  Serious: Yes (Other)
  Sender: FDA-Public Use
  Company Number: CN-IMPAX LABORATORIES, LLC-2018-IPXL-03751

PATIENT
  Age: 9 Year
  Sex: Male

DRUGS (3)
  1. ALBENZA [Suspect]
     Active Substance: ALBENDAZOLE
     Indication: TOXOCARIASIS
     Dosage: 2 DOSAGE FORM, BEDTIME
     Route: 048
     Dates: start: 2018, end: 2018
  2. PEDIATRIC PARACETAMOL AND AMANTADINE HYDROCHL [Concomitant]
     Indication: PRODUCT USED FOR UNKNOWN INDICATION
     Dosage: UNK
     Route: 065
     Dates: start: 20180910, end: 20180913
  3. ALBENZA [Suspect]
     Active Substance: ALBENDAZOLE
     Dosage: 2 DOSAGE FORM, UNK
     Route: 048
     Dates: start: 20180912, end: 20180912

REACTIONS (3)
  - Hyperpyrexia [Recovered/Resolved]
  - Diarrhoea [Recovered/Resolved]
  - Dizziness [Recovered/Resolved]

NARRATIVE: CASE EVENT DATE: 20180912
